FAERS Safety Report 14813918 (Version 1)
Quarter: 2018Q2

REPORT INFORMATION
  Report Type: Spontaneous
  Country: FR (occurrence: FR)
  Receive Date: 20180426
  Receipt Date: 20180426
  Transmission Date: 20180711
  Serious: Yes (Other)
  Sender: FDA-Public Use
  Company Number: FR-MERCK KGAA-2046577

PATIENT
  Age: 45 Year
  Sex: Female

DRUGS (1)
  1. NOVOTHYROX [Suspect]
     Active Substance: LEVOTHYROXINE SODIUM
     Indication: PRODUCT USED FOR UNKNOWN INDICATION
     Dates: start: 201705

REACTIONS (22)
  - Constipation [None]
  - Abdominal distension [None]
  - Depression [None]
  - Mood swings [None]
  - Abnormal behaviour [None]
  - Decreased interest [None]
  - Blood thyroid stimulating hormone decreased [None]
  - Myalgia [None]
  - Amnesia [None]
  - Arthralgia [None]
  - Tinnitus [None]
  - Loss of personal independence in daily activities [None]
  - Headache [None]
  - Dizziness [None]
  - Visual impairment [None]
  - Insomnia [None]
  - Muscular weakness [None]
  - Bone pain [None]
  - Tremor [None]
  - Nervousness [None]
  - Fatigue [None]
  - Social avoidant behaviour [None]

NARRATIVE: CASE EVENT DATE: 201705
